FAERS Safety Report 4354204-7 (Version None)
Quarter: 2004Q2

REPORT INFORMATION
  Report Type: 
  Country: None (occurrence: None)
  Receive Date: 20040506
  Receipt Date: 20040426
  Transmission Date: 20050107
  Serious: Yes (Hospitalization)
  Sender: FDA-Public Use
  Company Number: PHBS2004IT05897

PATIENT
  Age: 59 Year
  Sex: Female

DRUGS (3)
  1. FAMVIR [Suspect]
     Indication: HERPES SIMPLEX
     Dosage: 750 MG/D
     Route: 048
     Dates: start: 20040310, end: 20040312
  2. BISPHOSPHONATES [Concomitant]
  3. VOLTAREN [Concomitant]

REACTIONS (3)
  - DERMATITIS BULLOUS [None]
  - ORAL MUCOSAL PETECHIAE [None]
  - THROMBOCYTOPENIA [None]
